FAERS Safety Report 10015627 (Version 1)
Quarter: 2014Q1

REPORT INFORMATION
  Report Type: Spontaneous
  Country: US (occurrence: US)
  Receive Date: 20140317
  Receipt Date: 20140317
  Transmission Date: 20141002
  Serious: Yes (Other)
  Sender: FDA-Public Use
  Company Number: US-PFIZER INC-2014076658

PATIENT
  Age: 70 Year
  Sex: Female

DRUGS (2)
  1. GLYSET [Suspect]
     Dosage: 25 MG, 1X/DAY
  2. DETROL LA [Suspect]
     Dosage: 4 MG, 1X/DAY

REACTIONS (1)
  - Carotid artery stenosis [Not Recovered/Not Resolved]
